FAERS Safety Report 18730462 (Version 1)
Quarter: 2021Q1

REPORT INFORMATION
  Report Type: Spontaneous
  Country: FR (occurrence: FR)
  Receive Date: 20210112
  Receipt Date: 20210112
  Transmission Date: 20210419
  Serious: Yes (Death)
  Sender: FDA-Public Use
  Company Number: FR-PFIZER INC-2021009192

PATIENT
  Age: 41 Year
  Sex: Female

DRUGS (4)
  1. ALPRAZOLAM. [Suspect]
     Active Substance: ALPRAZOLAM
     Dosage: UNK
     Route: 065
     Dates: end: 2019
  2. CYAMEMAZINE [Suspect]
     Active Substance: CYAMEMAZINE
     Dosage: UNK
     Route: 065
     Dates: end: 2019
  3. METHADONE [Suspect]
     Active Substance: METHADONE HYDROCHLORIDE
     Dosage: UNK
     Route: 065
     Dates: end: 2019
  4. SERTRALINE HCL [Suspect]
     Active Substance: SERTRALINE HYDROCHLORIDE
     Dosage: UNK
     Route: 065
     Dates: end: 2019

REACTIONS (2)
  - Cardio-respiratory distress [Fatal]
  - Drug abuse [Fatal]
